FAERS Safety Report 19544726 (Version 1)
Quarter: 2021Q3

REPORT INFORMATION
  Report Type: Spontaneous
  Country: PT (occurrence: PT)
  Receive Date: 20210713
  Receipt Date: 20210713
  Transmission Date: 20211014
  Serious: Yes (Other)
  Sender: FDA-Public Use
  Company Number: PT-PFIZER INC-2021792925

PATIENT
  Age: 19 Month
  Sex: Male

DRUGS (13)
  1. CARBOPLATIN. [Suspect]
     Active Substance: CARBOPLATIN
     Indication: NEUROBLASTOMA
     Dosage: 1ST CYCLE, CYCLIC
     Route: 065
  2. RECOMBINANT COAGULATION FACTOR VIII [Concomitant]
     Active Substance: ANTIHEMOPHILIC FACTOR, HUMAN RECOMBINANT
     Route: 065
  3. ETOPOSIDE. [Suspect]
     Active Substance: ETOPOSIDE
     Indication: NEUROBLASTOMA
     Dosage: 1ST CYCLE, CYCLIC
     Route: 065
  4. RECOMBINANT COAGULATION FACTOR VIII [Concomitant]
     Active Substance: ANTIHEMOPHILIC FACTOR, HUMAN RECOMBINANT
     Indication: HAEMATOMA
     Dosage: FREQ:12 H;SECOND AND THIRD DAY DAYS
     Route: 065
  5. RECOMBINANT COAGULATION FACTOR VIII [Concomitant]
     Active Substance: ANTIHEMOPHILIC FACTOR, HUMAN RECOMBINANT
     Indication: FACTOR VIII DEFICIENCY
     Dosage: FREQ:8 H;FIRST DAYINFUSION
     Route: 065
  6. CISPLATIN. [Suspect]
     Active Substance: CISPLATIN
     Indication: NEUROBLASTOMA
     Dosage: 1ST CYCLE, CYCLIC
     Route: 065
  7. ENDOXAN [CYCLOPHOSPHAMIDE MONOHYDRATE] [Suspect]
     Active Substance: CYCLOPHOSPHAMIDE
     Indication: NEUROBLASTOMA
     Dosage: 1ST CYCLE, CYCLIC
     Route: 065
  8. RECOMBINANT COAGULATION FACTOR VIII [Concomitant]
     Active Substance: ANTIHEMOPHILIC FACTOR, HUMAN RECOMBINANT
     Dosage: 75 IU/KG, WEEKLY
     Route: 065
  9. PIPERACILLIN/TAZOBACTAM [Concomitant]
     Active Substance: PIPERACILLIN SODIUM\TAZOBACTAM SODIUM
     Indication: EVIDENCE BASED TREATMENT
     Dosage: ONE CYCLE, CYCLIC
     Route: 065
  10. BLOOD [Concomitant]
     Active Substance: WHOLE BLOOD
     Indication: ANAEMIA
     Dosage: PACKED RED BLOOD CELLS TRANSFUSION
     Route: 065
  11. PIPERACILLIN/TAZOBACTAM [Concomitant]
     Active Substance: PIPERACILLIN SODIUM\TAZOBACTAM SODIUM
     Indication: ANTIBIOTIC THERAPY
  12. VINCRISTINE [Suspect]
     Active Substance: VINCRISTINE
     Indication: NEUROBLASTOMA
     Dosage: 1ST CYCLE, CYCLIC
     Route: 065
  13. RECOMBINANT COAGULATION FACTOR VIII [Concomitant]
     Active Substance: ANTIHEMOPHILIC FACTOR, HUMAN RECOMBINANT
     Indication: PROPHYLAXIS
     Dosage: DAILY FROM THE 6TH DAY
     Route: 065

REACTIONS (3)
  - Hypertension [Unknown]
  - Clostridium difficile infection [Unknown]
  - Off label use [Unknown]
